FAERS Safety Report 16969283 (Version 3)
Quarter: 2019Q4

REPORT INFORMATION
  Report Type: Spontaneous
  Country: CN (occurrence: CN)
  Receive Date: 20191029
  Receipt Date: 20191118
  Transmission Date: 20200122
  Serious: Yes (Hospitalization, Other)
  Sender: FDA-Public Use
  Company Number: CN-B.I. PHARMACEUTICALS,INC./RIDGEFIELD-2019-BI-109457

PATIENT
  Age: 53 Year
  Sex: Female

DRUGS (4)
  1. GILOTRIF [Suspect]
     Active Substance: AFATINIB
     Indication: ADENOCARCINOMA
     Route: 065
     Dates: start: 20191002, end: 20191003
  2. GILOTRIF [Suspect]
     Active Substance: AFATINIB
     Indication: EGFR GENE MUTATION
  3. OSIMERTINIB. [Concomitant]
     Active Substance: OSIMERTINIB
     Indication: EGFR GENE MUTATION
     Route: 065
     Dates: start: 20191004
  4. OSIMERTINIB. [Concomitant]
     Active Substance: OSIMERTINIB
     Indication: ADENOCARCINOMA
     Route: 065
     Dates: start: 20190907, end: 20191001

REACTIONS (4)
  - Pyrexia [Not Recovered/Not Resolved]
  - Haematochezia [Recovering/Resolving]
  - Dermatitis bullous [Recovering/Resolving]
  - Infection [Not Recovered/Not Resolved]

NARRATIVE: CASE EVENT DATE: 201910
